FAERS Safety Report 9578673 (Version 1)
Quarter: 2013Q4

REPORT INFORMATION
  Report Type: Spontaneous
  Country: US (occurrence: US)
  Receive Date: 20131001
  Receipt Date: 20131001
  Transmission Date: 20140711
  Serious: No
  Sender: FDA-Public Use
  Company Number: US-AMGEN-USASP2013014296

PATIENT
  Age: 51 Year
  Sex: Female
  Weight: 64.4 kg

DRUGS (13)
  1. ENBREL [Suspect]
     Indication: PRODUCT USED FOR UNKNOWN INDICATION
     Dosage: 50 MG, 2 TIMES/WK
     Route: 058
  2. ADDERALL [Concomitant]
     Dosage: 5 MG, UNK
  3. VIIBRYD [Concomitant]
     Dosage: 10 MG, UNK
  4. MACRODANTIN [Concomitant]
     Dosage: 100 MG, UNK
  5. FISH OIL [Concomitant]
     Dosage: UNK
  6. VITAMIN B-12 [Concomitant]
     Dosage: 1000 MUG, UNK
  7. MULTIVITAMIN                       /07504101/ [Concomitant]
     Dosage: UNK
  8. SYNTHROID [Concomitant]
     Dosage: 100 MUG, UNK
  9. LAMOTRIGINE [Concomitant]
     Dosage: 100 MG, UNK
  10. MIGRANAL [Concomitant]
     Dosage: 4 MG/ML, UNK SPR
  11. NEURONTIN [Concomitant]
     Dosage: 100 MG, UNK
  12. NEXIUM                             /01479302/ [Concomitant]
     Dosage: 20 MG, UNK
  13. PROGESTERONE [Concomitant]
     Dosage: 100 MG, UNK

REACTIONS (1)
  - Sinusitis [Unknown]
